FAERS Safety Report 18721415 (Version 2)
Quarter: 2021Q4

REPORT INFORMATION
  Report Type: Spontaneous
  Country: CA (occurrence: CA)
  Receive Date: 20210110
  Receipt Date: 20211221
  Transmission Date: 20220304
  Serious: Yes (Hospitalization, Other)
  Sender: FDA-Public Use
  Company Number: CA-TEVA-2020-CA-1865831

PATIENT
  Age: 50 Year
  Sex: Female

DRUGS (107)
  1. PREDNISONE [Interacting]
     Active Substance: PREDNISONE
     Indication: Complex regional pain syndrome
     Dosage: 85 MILLIGRAM DAILY;
     Route: 065
  2. PREDNISONE [Interacting]
     Active Substance: PREDNISONE
     Dosage: 5 MILLIGRAM DAILY;
     Route: 065
  3. PREDNISONE [Interacting]
     Active Substance: PREDNISONE
     Dosage: 95 MILLIGRAM DAILY;
     Route: 065
  4. PREDNISONE [Interacting]
     Active Substance: PREDNISONE
     Route: 065
  5. PREDNISONE [Interacting]
     Active Substance: PREDNISONE
     Route: 065
  6. AMLODIPINE BESYLATE [Interacting]
     Active Substance: AMLODIPINE BESYLATE
     Indication: Complex regional pain syndrome
     Route: 065
  7. AMLODIPINE BESYLATE [Interacting]
     Active Substance: AMLODIPINE BESYLATE
     Route: 065
  8. AMLODIPINE BESYLATE [Interacting]
     Active Substance: AMLODIPINE BESYLATE
     Route: 065
  9. AMITRIPTYLINE HYDROCHLORIDE [Interacting]
     Active Substance: AMITRIPTYLINE HYDROCHLORIDE
     Indication: Complex regional pain syndrome
     Route: 065
  10. AMITRIPTYLINE HYDROCHLORIDE [Interacting]
     Active Substance: AMITRIPTYLINE HYDROCHLORIDE
     Route: 065
  11. AMITRIPTYLINE HYDROCHLORIDE [Interacting]
     Active Substance: AMITRIPTYLINE HYDROCHLORIDE
     Route: 065
  12. CLONIDINE [Interacting]
     Active Substance: CLONIDINE
     Indication: Complex regional pain syndrome
     Route: 065
  13. CLONIDINE [Interacting]
     Active Substance: CLONIDINE
     Route: 065
  14. CLONIDINE [Interacting]
     Active Substance: CLONIDINE
     Route: 065
  15. DILTIAZEM HYDROCHLORIDE [Interacting]
     Active Substance: DILTIAZEM HYDROCHLORIDE
     Indication: Complex regional pain syndrome
     Route: 065
  16. DILTIAZEM HYDROCHLORIDE [Interacting]
     Active Substance: DILTIAZEM HYDROCHLORIDE
     Route: 065
  17. DILTIAZEM HYDROCHLORIDE [Interacting]
     Active Substance: DILTIAZEM HYDROCHLORIDE
     Route: 065
  18. MEMANTINE HYDROCHLORIDE [Interacting]
     Active Substance: MEMANTINE HYDROCHLORIDE
     Indication: Complex regional pain syndrome
     Route: 065
  19. MEMANTINE HYDROCHLORIDE [Interacting]
     Active Substance: MEMANTINE HYDROCHLORIDE
     Route: 065
  20. MEMANTINE HYDROCHLORIDE [Interacting]
     Active Substance: MEMANTINE HYDROCHLORIDE
     Route: 065
  21. METOPROLOL [Interacting]
     Active Substance: METOPROLOL
     Indication: Complex regional pain syndrome
     Route: 065
  22. METOPROLOL [Interacting]
     Active Substance: METOPROLOL
     Route: 065
  23. METOPROLOL [Interacting]
     Active Substance: METOPROLOL
     Route: 065
  24. MEXILETINE [Interacting]
     Active Substance: MEXILETINE
     Indication: Complex regional pain syndrome
     Route: 065
  25. MEXILETINE [Interacting]
     Active Substance: MEXILETINE
     Route: 065
  26. MEXILETINE [Interacting]
     Active Substance: MEXILETINE
     Route: 065
  27. MONTELUKAST [Interacting]
     Active Substance: MONTELUKAST SODIUM
     Indication: Complex regional pain syndrome
     Route: 065
  28. MONTELUKAST [Interacting]
     Active Substance: MONTELUKAST SODIUM
     Route: 065
  29. MONTELUKAST [Interacting]
     Active Substance: MONTELUKAST SODIUM
     Route: 065
  30. MYCOPHENOLATE MOFETIL [Interacting]
     Active Substance: MYCOPHENOLATE MOFETIL
     Indication: Complex regional pain syndrome
     Route: 065
  31. MYCOPHENOLATE MOFETIL [Interacting]
     Active Substance: MYCOPHENOLATE MOFETIL
     Route: 065
  32. MYCOPHENOLATE MOFETIL [Interacting]
     Active Substance: MYCOPHENOLATE MOFETIL
     Route: 065
  33. NALTREXONE HYDROCHLORIDE [Interacting]
     Active Substance: NALTREXONE HYDROCHLORIDE
     Indication: Complex regional pain syndrome
     Dosage: 4.5 MILLIGRAM DAILY;
     Route: 065
  34. NALTREXONE HYDROCHLORIDE [Interacting]
     Active Substance: NALTREXONE HYDROCHLORIDE
     Dosage: 4.5 MILLIGRAM DAILY;
     Route: 065
  35. PREGABALIN [Interacting]
     Active Substance: PREGABALIN
     Indication: Complex regional pain syndrome
     Route: 065
  36. PREGABALIN [Interacting]
     Active Substance: PREGABALIN
     Route: 065
  37. PREGABALIN [Interacting]
     Active Substance: PREGABALIN
     Route: 065
  38. SPIRONOLACTONE [Interacting]
     Active Substance: SPIRONOLACTONE
     Indication: Complex regional pain syndrome
     Route: 065
  39. SPIRONOLACTONE [Interacting]
     Active Substance: SPIRONOLACTONE
     Route: 065
  40. SPIRONOLACTONE [Interacting]
     Active Substance: SPIRONOLACTONE
     Route: 065
  41. MAGNESIUM [Suspect]
     Active Substance: MAGNESIUM
     Indication: Migraine prophylaxis
     Route: 065
  42. MAGNESIUM [Suspect]
     Active Substance: MAGNESIUM
     Route: 065
  43. MAGNESIUM [Suspect]
     Active Substance: MAGNESIUM
     Route: 065
  44. APREMILAST [Interacting]
     Active Substance: APREMILAST
     Indication: Complex regional pain syndrome
     Route: 065
  45. APREMILAST [Interacting]
     Active Substance: APREMILAST
     Route: 065
  46. APREMILAST [Interacting]
     Active Substance: APREMILAST
     Route: 065
  47. BUMETANIDE [Interacting]
     Active Substance: BUMETANIDE
     Indication: Complex regional pain syndrome
     Route: 065
  48. BUMETANIDE [Interacting]
     Active Substance: BUMETANIDE
     Route: 065
  49. BUMETANIDE [Interacting]
     Active Substance: BUMETANIDE
     Route: 065
  50. CAPSAICIN [Interacting]
     Active Substance: CAPSAICIN
     Indication: Complex regional pain syndrome
     Route: 061
  51. CAPSAICIN [Interacting]
     Active Substance: CAPSAICIN
     Route: 065
  52. CAPSAICIN [Interacting]
     Active Substance: CAPSAICIN
     Route: 061
  53. CIMETIDINE [Interacting]
     Active Substance: CIMETIDINE
     Indication: Complex regional pain syndrome
     Route: 065
  54. CIMETIDINE [Interacting]
     Active Substance: CIMETIDINE
     Route: 065
  55. CIMETIDINE [Interacting]
     Active Substance: CIMETIDINE
     Route: 065
  56. ERELZI [Interacting]
     Active Substance: ETANERCEPT-SZZS
     Indication: Complex regional pain syndrome
     Route: 065
  57. ERELZI [Interacting]
     Active Substance: ETANERCEPT-SZZS
     Route: 065
  58. ERELZI [Interacting]
     Active Substance: ETANERCEPT-SZZS
     Route: 065
  59. HYDROXYCHLOROQUINE SULFATE [Interacting]
     Active Substance: HYDROXYCHLOROQUINE SULFATE
     Indication: Complex regional pain syndrome
     Route: 065
  60. HYDROXYCHLOROQUINE SULFATE [Interacting]
     Active Substance: HYDROXYCHLOROQUINE SULFATE
     Route: 065
  61. HYDROXYCHLOROQUINE SULFATE [Interacting]
     Active Substance: HYDROXYCHLOROQUINE SULFATE
     Route: 065
  62. IBUDILAST [Interacting]
     Active Substance: IBUDILAST
     Indication: Complex regional pain syndrome
     Route: 065
  63. IBUDILAST [Interacting]
     Active Substance: IBUDILAST
     Route: 065
  64. IBUDILAST [Interacting]
     Active Substance: IBUDILAST
     Route: 065
  65. KETAMINE [Interacting]
     Active Substance: KETAMINE
     Indication: Complex regional pain syndrome
     Route: 061
  66. KETAMINE [Interacting]
     Active Substance: KETAMINE
     Route: 048
  67. KETAMINE [Interacting]
     Active Substance: KETAMINE
     Route: 042
  68. KETAMINE [Interacting]
     Active Substance: KETAMINE
     Route: 048
  69. KETAMINE [Interacting]
     Active Substance: KETAMINE
     Route: 048
  70. LIDOCAINE [Interacting]
     Active Substance: LIDOCAINE
     Indication: Complex regional pain syndrome
     Route: 042
  71. LIDOCAINE [Interacting]
     Active Substance: LIDOCAINE
     Route: 061
  72. LIDOCAINE [Interacting]
     Active Substance: LIDOCAINE
     Route: 061
  73. LIDOCAINE [Interacting]
     Active Substance: LIDOCAINE
     Route: 061
  74. LITHIUM CARBONATE [Interacting]
     Active Substance: LITHIUM CARBONATE
     Indication: Complex regional pain syndrome
     Route: 065
  75. LITHIUM CARBONATE [Interacting]
     Active Substance: LITHIUM CARBONATE
     Route: 065
  76. LITHIUM CARBONATE [Interacting]
     Active Substance: LITHIUM CARBONATE
     Route: 065
  77. MAGNESIUM GLUCONATE [Interacting]
     Active Substance: MAGNESIUM GLUCONATE
     Indication: Complex regional pain syndrome
     Route: 065
  78. MAGNESIUM GLUCONATE [Interacting]
     Active Substance: MAGNESIUM GLUCONATE
     Indication: Migraine prophylaxis
     Route: 065
  79. ACETYLCYSTEINE [Interacting]
     Active Substance: ACETYLCYSTEINE
     Indication: Complex regional pain syndrome
     Route: 065
  80. ACETYLCYSTEINE [Interacting]
     Active Substance: ACETYLCYSTEINE
     Route: 065
  81. PALMIDROL [Interacting]
     Active Substance: PALMIDROL
     Indication: Complex regional pain syndrome
     Route: 065
  82. PALMIDROL [Interacting]
     Active Substance: PALMIDROL
     Route: 065
  83. PALMIDROL [Interacting]
     Active Substance: PALMIDROL
     Route: 065
  84. PENTOXIFYLLINE [Interacting]
     Active Substance: PENTOXIFYLLINE
     Indication: Complex regional pain syndrome
     Route: 065
  85. PENTOXIFYLLINE [Interacting]
     Active Substance: PENTOXIFYLLINE
     Route: 065
  86. PENTOXIFYLLINE [Interacting]
     Active Substance: PENTOXIFYLLINE
     Route: 065
  87. PREDNISONE [Interacting]
     Active Substance: PREDNISONE
     Indication: Complex regional pain syndrome
     Dosage: 13 MILLIGRAM DAILY;
     Route: 065
  88. VITAMIN B2 [Interacting]
     Active Substance: RIBOFLAVIN
     Indication: Complex regional pain syndrome
     Route: 065
  89. VITAMIN B2 [Interacting]
     Active Substance: RIBOFLAVIN
     Indication: Migraine prophylaxis
     Route: 065
  90. VITAMIN B2 [Interacting]
     Active Substance: RIBOFLAVIN
     Route: 065
  91. VITAMIN B2 [Interacting]
     Active Substance: RIBOFLAVIN
     Route: 065
  92. VITAMIN B2 [Interacting]
     Active Substance: RIBOFLAVIN
     Route: 065
  93. VITAMIN B2 [Interacting]
     Active Substance: RIBOFLAVIN
     Route: 065
  94. ASCORBIC ACID [Interacting]
     Active Substance: ASCORBIC ACID
     Indication: Complex regional pain syndrome
     Route: 065
  95. ASCORBIC ACID [Interacting]
     Active Substance: ASCORBIC ACID
     Route: 065
  96. ASCORBIC ACID [Interacting]
     Active Substance: ASCORBIC ACID
     Route: 065
  97. ANAKINRA [Interacting]
     Active Substance: ANAKINRA
     Indication: Complex regional pain syndrome
     Route: 065
  98. ANAKINRA [Interacting]
     Active Substance: ANAKINRA
     Route: 065
  99. ANAKINRA [Interacting]
     Active Substance: ANAKINRA
     Route: 065
  100. ACETYLCYSTEINE [Suspect]
     Active Substance: ACETYLCYSTEINE
     Indication: Complex regional pain syndrome
     Route: 065
  101. NALTREXONE HYDROCHLORIDE [Suspect]
     Active Substance: NALTREXONE HYDROCHLORIDE
     Indication: Complex regional pain syndrome
     Dosage: 4.5 MILLIGRAM DAILY;
     Route: 065
  102. CALCITONIN [Interacting]
     Active Substance: CALCITONIN
     Indication: Complex regional pain syndrome
     Route: 065
  103. CALCITONIN [Concomitant]
     Active Substance: CALCITONIN
     Route: 065
  104. EZETIMIBE [Concomitant]
     Active Substance: EZETIMIBE
     Route: 065
  105. EZETIMIBE [Concomitant]
     Active Substance: EZETIMIBE
     Route: 065
  106. TRAZODONE [Concomitant]
     Active Substance: TRAZODONE HYDROCHLORIDE
     Route: 065
  107. TRAZODONE [Concomitant]
     Active Substance: TRAZODONE HYDROCHLORIDE
     Route: 065

REACTIONS (21)
  - Body tinea [Recovered/Resolved]
  - Bone density decreased [Recovered/Resolved]
  - Cataract [Recovered/Resolved]
  - Cellulitis [Recovered/Resolved]
  - Contusion [Recovered/Resolved]
  - Fatigue [Recovered/Resolved]
  - Glucose tolerance impaired [Recovered/Resolved]
  - Herpes zoster [Recovered/Resolved]
  - Hyperlipidaemia [Recovered/Resolved]
  - Hypertension [Recovered/Resolved]
  - Impaired quality of life [Recovered/Resolved]
  - Impaired work ability [Recovered/Resolved]
  - Infection susceptibility increased [Recovered/Resolved]
  - Inhibitory drug interaction [Recovered/Resolved]
  - Insomnia [Recovered/Resolved]
  - Oral herpes [Recovered/Resolved]
  - Poor quality sleep [Recovered/Resolved]
  - Purpura [Recovered/Resolved]
  - Skin disorder [Recovered/Resolved]
  - Weight increased [Recovered/Resolved]
  - Drug ineffective [Recovered/Resolved]
